FAERS Safety Report 23621708 (Version 1)
Quarter: 2024Q1

REPORT INFORMATION
  Report Type: Spontaneous
  Country: US (occurrence: US)
  Receive Date: 20240312
  Receipt Date: 20240312
  Transmission Date: 20240409
  Serious: Yes (Hospitalization)
  Sender: FDA-Public Use
  Company Number: US-AMNEAL PHARMACEUTICALS-2024-AMRX-00768

PATIENT
  Age: 35 Year

DRUGS (1)
  1. ISOTRETINOIN [Suspect]
     Active Substance: ISOTRETINOIN
     Indication: Product used for unknown indication
     Dosage: 40 MG
     Route: 065
     Dates: start: 20221107, end: 20230507

REACTIONS (12)
  - Gastrooesophageal reflux disease [Unknown]
  - Dehydration [Unknown]
  - Gait disturbance [Unknown]
  - Pain in extremity [Unknown]
  - Depressed mood [Unknown]
  - Crying [Unknown]
  - Visual impairment [Unknown]
  - Chromaturia [Unknown]
  - Headache [Unknown]
  - Epistaxis [Unknown]
  - Eating disorder [Unknown]
  - Treatment noncompliance [Unknown]

NARRATIVE: CASE EVENT DATE: 20230301
